FAERS Safety Report 6533626-X (Version None)
Quarter: 2010Q1

REPORT INFORMATION
  Report Type: 
  Country: None (occurrence: None)
  Receive Date: 20100111
  Receipt Date: 20100104
  Transmission Date: 20100710
  Serious: Yes (Other)
  Sender: FDA-Public Use
  Company Number: AU-ABBOTT-10P-008-0617495-00

PATIENT
  Age: 65 Year
  Sex: Female

DRUGS (4)
  1. EPILIM [Suspect]
     Indication: CONVULSION
     Route: 048
     Dates: start: 19930101, end: 20091023
  2. EPILIM [Suspect]
     Route: 048
     Dates: start: 20091023, end: 20091106
  3. DIGOXIN [Concomitant]
     Indication: DRUG USE FOR UNKNOWN INDICATION
  4. ALLEVA [Concomitant]
     Indication: DRUG USE FOR UNKNOWN INDICATION

REACTIONS (1)
  - DEMENTIA ALZHEIMER'S TYPE [None]
